FAERS Safety Report 9455599 (Version 1)
Quarter: 2013Q3

REPORT INFORMATION
  Report Type: Spontaneous
  Country: US (occurrence: US)
  Receive Date: 20130813
  Receipt Date: 20130813
  Transmission Date: 20140515
  Serious: No
  Sender: FDA-Public Use
  Company Number: US-PFIZER INC-2013230543

PATIENT
  Age: 58 Year
  Sex: Female
  Weight: 74.83 kg

DRUGS (7)
  1. NORVASC [Suspect]
     Indication: HYPERTENSION
     Dosage: 10 MG, 1X/DAY
     Route: 048
     Dates: start: 201206, end: 20130626
  2. GLASSIA [Suspect]
     Indication: ALPHA-1 ANTI-TRYPSIN DEFICIENCY
     Dosage: 400 MG, WEEKLY
     Route: 042
     Dates: start: 20120929
  3. LOVASTATIN [Concomitant]
     Dosage: 40 MG, 1X/DAY
  4. COLCRYS [Concomitant]
     Dosage: 6 MG, 1X/DAY
  5. MELOXICAM [Concomitant]
     Dosage: 15 MG, AS NEEDED
  6. TRAMADOL [Concomitant]
     Dosage: 50 MG, AS NEEDED (WITH MELOXICAM)
  7. ADVAIR [Concomitant]
     Dosage: 250 MG, 2X/DAY

REACTIONS (1)
  - Arrhythmia [Unknown]
